FAERS Safety Report 8177826-4 (Version None)
Quarter: 2012Q1

REPORT INFORMATION
  Report Type: 
  Country: None (occurrence: None)
  Receive Date: 20120301
  Receipt Date: 20120220
  Transmission Date: 20120608
  Serious: Yes (Hospitalization)
  Sender: FDA-Public Use
  Company Number: US-MERCK-1202USA03649

PATIENT
  Age: 48 Year
  Sex: Female

DRUGS (4)
  1. PEMETREXED DISODIUM [Concomitant]
     Indication: NON-SMALL CELL LUNG CANCER
     Route: 065
  2. PEMETREXED DISODIUM [Concomitant]
     Indication: METASTASES TO CENTRAL NERVOUS SYSTEM
     Route: 065
  3. DECADRON [Suspect]
     Indication: NON-SMALL CELL LUNG CANCER
     Route: 048
  4. DECADRON [Suspect]
     Indication: METASTASES TO CENTRAL NERVOUS SYSTEM
     Route: 048

REACTIONS (1)
  - ENCEPHALITIS HERPES [None]
